FAERS Safety Report 11237069 (Version 1)
Quarter: 2015Q3

REPORT INFORMATION
  Report Type: Spontaneous
  Country: US (occurrence: US)
  Receive Date: 20150703
  Receipt Date: 20150703
  Transmission Date: 20151125
  Serious: Yes (Other)
  Sender: FDA-Public Use
  Company Number: US-JNJFOC-20150622692

PATIENT
  Age: 72 Year
  Sex: Male
  Weight: 76.66 kg

DRUGS (2)
  1. CELEBREX [Concomitant]
     Active Substance: CELECOXIB
     Indication: ARTHRALGIA
     Route: 065
  2. REMICADE [Suspect]
     Active Substance: INFLIXIMAB
     Indication: RHEUMATOID ARTHRITIS
     Route: 042
     Dates: start: 201406, end: 201412

REACTIONS (2)
  - Kaposi^s sarcoma [Unknown]
  - Arthralgia [Unknown]

NARRATIVE: CASE EVENT DATE: 201412
